FAERS Safety Report 24557224 (Version 1)
Quarter: 2024Q4

REPORT INFORMATION
  Report Type: Spontaneous
  Country: US (occurrence: US)
  Receive Date: 20241028
  Receipt Date: 20241028
  Transmission Date: 20250115
  Serious: Yes (Hospitalization, Other)
  Sender: ALEMBIC
  Company Number: US-ALEMBIC PHARMACUETICALS LIMITED-2024SCAL001287

PATIENT

DRUGS (4)
  1. METHOTREXATE [Suspect]
     Active Substance: METHOTREXATE
     Indication: Rheumatoid arthritis
     Dosage: 15 MG WEEKLY
     Route: 065
  2. METHOTREXATE [Suspect]
     Active Substance: METHOTREXATE
     Dosage: 20 MG WEEKLY
     Route: 048
  3. FOLIC ACID [Concomitant]
     Active Substance: FOLIC ACID
     Indication: Stomatitis
     Dosage: 1 MG, QD
     Route: 065
  4. FOLIC ACID [Concomitant]
     Active Substance: FOLIC ACID
     Dosage: 2 MG, QD
     Route: 065

REACTIONS (28)
  - Toxicity to various agents [Unknown]
  - Enterococcal infection [Unknown]
  - Stomatitis [Recovered/Resolved]
  - Treatment noncompliance [Unknown]
  - Odynophagia [Unknown]
  - Oral pain [Recovering/Resolving]
  - Oral disorder [Recovering/Resolving]
  - Decreased appetite [Unknown]
  - Fatigue [Unknown]
  - Blood pressure decreased [Unknown]
  - Heart rate increased [Unknown]
  - Oxygen saturation decreased [Unknown]
  - Pancytopenia [Unknown]
  - Haemoglobin decreased [Recovering/Resolving]
  - Neutrophil count decreased [Unknown]
  - Dysphagia [Unknown]
  - Febrile neutropenia [Unknown]
  - Haematocrit decreased [Recovering/Resolving]
  - Blood creatinine increased [Recovering/Resolving]
  - White blood cell count decreased [Recovering/Resolving]
  - Lymphocyte count decreased [Not Recovered/Not Resolved]
  - Platelet count decreased [Recovering/Resolving]
  - Red blood cell count decreased [Recovering/Resolving]
  - Blood sodium decreased [Recovering/Resolving]
  - Blood chloride decreased [Recovering/Resolving]
  - Blood glucose increased [Not Recovered/Not Resolved]
  - Blood albumin decreased [Not Recovered/Not Resolved]
  - Blood urea increased [Recovering/Resolving]

NARRATIVE: CASE EVENT DATE: 20230221
